FAERS Safety Report 24856757 (Version 8)
Quarter: 2025Q3

REPORT INFORMATION
  Report Type: Spontaneous
  Country: US (occurrence: US)
  Receive Date: 20250117
  Receipt Date: 20250710
  Transmission Date: 20251020
  Serious: Yes (Other)
  Sender: BRISTOL-MYERS SQUIBB COMPANY
  Company Number: US-BRISTOL-MYERS SQUIBB COMPANY-2025-007057

PATIENT
  Age: 71 Year
  Sex: Female

DRUGS (13)
  1. INREBIC [Suspect]
     Active Substance: FEDRATINIB HYDROCHLORIDE
     Indication: Polycythaemia vera
     Dosage: FREQUENCY: TAKE 4 CAPSULES (400 MG) BY MOUTH EVERY DAY/ DAILY
     Route: 048
     Dates: start: 20230414
  2. INREBIC [Suspect]
     Active Substance: FEDRATINIB HYDROCHLORIDE
     Indication: Myelofibrosis
  3. PENICILLIN [Suspect]
     Active Substance: PENICILLIN
     Indication: Product used for unknown indication
  4. ALLOPURINOL [Concomitant]
     Active Substance: ALLOPURINOL
     Indication: Product used for unknown indication
  5. ACETAMINOPHEN [Concomitant]
     Active Substance: ACETAMINOPHEN
     Indication: Product used for unknown indication
  6. AMMONIUM LACTATE [Concomitant]
     Active Substance: AMMONIUM LACTATE
     Indication: Product used for unknown indication
  7. ASCORBIC ACID [Concomitant]
     Active Substance: ASCORBIC ACID
     Indication: Product used for unknown indication
  8. ASPIRIN [Concomitant]
     Active Substance: ASPIRIN
     Indication: Product used for unknown indication
  9. DEXTRIN\WHEAT [Concomitant]
     Active Substance: ICODEXTRIN\WHEAT
     Indication: Product used for unknown indication
  10. CETIRIZINE HCL [Concomitant]
     Active Substance: CETIRIZINE HYDROCHLORIDE
     Indication: Product used for unknown indication
  11. CHILDREN^S PEPTO [Concomitant]
     Indication: Product used for unknown indication
  12. CLINDAMYCIN HYDROCHLORIDE [Concomitant]
     Active Substance: CLINDAMYCIN HYDROCHLORIDE
     Indication: Product used for unknown indication
  13. CORTIZONE 10 [HYDROCORTISONE] [Concomitant]
     Indication: Product used for unknown indication

REACTIONS (33)
  - Anaemia [Unknown]
  - Oedema peripheral [Unknown]
  - Erythema [Unknown]
  - Serum ferritin increased [Unknown]
  - Chronic kidney disease [Unknown]
  - Neuropathy peripheral [Unknown]
  - Anaphylactic shock [Unknown]
  - Drug hypersensitivity [Unknown]
  - Fatigue [Unknown]
  - Insomnia [Unknown]
  - Visual impairment [Unknown]
  - Abdominal distension [Unknown]
  - Pollakiuria [Unknown]
  - Back pain [Unknown]
  - Neck pain [Unknown]
  - Muscular weakness [Unknown]
  - Hypoaesthesia [Unknown]
  - Rash [Unknown]
  - Dizziness [Unknown]
  - Contusion [Not Recovered/Not Resolved]
  - Haemorrhage [Unknown]
  - Nervousness [Unknown]
  - Anxiety [Unknown]
  - Platelet dysfunction [Unknown]
  - White blood cell count decreased [Unknown]
  - Photopsia [Unknown]
  - Headache [Recovering/Resolving]
  - Fall [Unknown]
  - Concussion [Recovering/Resolving]
  - Fractured coccyx [Unknown]
  - Spinal cord injury [Unknown]
  - Diarrhoea [Unknown]
  - Nausea [Unknown]

NARRATIVE: CASE EVENT DATE: 20250101
